FAERS Safety Report 14154016 (Version 2)
Quarter: 2017Q4

REPORT INFORMATION
  Report Type: Report from Study
  Country: TR (occurrence: TR)
  Receive Date: 20171102
  Receipt Date: 20171127
  Transmission Date: 20180321
  Serious: Yes (Other)
  Sender: FDA-Public Use
  Company Number: TR-JNJFOC-20171031193

PATIENT

DRUGS (1)
  1. TOPIRAMATE. [Suspect]
     Active Substance: TOPIRAMATE
     Indication: MIGRAINE PROPHYLAXIS
     Route: 048

REACTIONS (7)
  - Flat anterior chamber of eye [Unknown]
  - Choroidal detachment [Unknown]
  - Intraocular pressure increased [Unknown]
  - Chorioretinal disorder [Unknown]
  - Myopia [Unknown]
  - Narrow anterior chamber angle [Unknown]
  - Ciliary body disorder [Unknown]
